FAERS Safety Report 4456198-2 (Version None)
Quarter: 2004Q3

REPORT INFORMATION
  Report Type: 
  Country: None (occurrence: None)
  Receive Date: 20040920
  Receipt Date: 20040909
  Transmission Date: 20050211
  Serious: Yes (Death, Life-Threatening, Hospitalization, Disabling)
  Sender: FDA-Public Use
  Company Number: 2004PK01284

PATIENT
  Age: 69 Year
  Sex: Male
  Weight: 76.3 kg

DRUGS (5)
  1. IRESSA [Suspect]
     Indication: TRANSITIONAL CELL CARCINOMA
     Dosage: 250 MG DAILY PO
     Route: 048
     Dates: start: 20040720, end: 20040731
  2. GEMCITABINE [Suspect]
     Indication: TRANSITIONAL CELL CARCINOMA
     Dosage: 1250 MG IV
     Route: 042
     Dates: start: 20040720, end: 20040720
  3. GEMCITABINE [Suspect]
     Indication: TRANSITIONAL CELL CARCINOMA
     Dosage: 1250 MG IV
     Route: 042
     Dates: start: 20040727, end: 20040727
  4. CISPLATIN [Suspect]
     Indication: TRANSITIONAL CELL CARCINOMA
     Dosage: 70 MG/M2 IV
     Route: 042
     Dates: start: 20040720, end: 20040720
  5. POTASSIUM CHLORIDE [Concomitant]

REACTIONS (9)
  - ABDOMINAL PAIN [None]
  - DEHYDRATION [None]
  - DIARRHOEA [None]
  - DISSEMINATED INTRAVASCULAR COAGULATION [None]
  - HYPOTENSION [None]
  - NEUTROPENIA [None]
  - RENAL FAILURE [None]
  - SEPTIC SHOCK [None]
  - SINUS TACHYCARDIA [None]
